FAERS Safety Report 9357922 (Version 2)
Quarter: 2013Q3

REPORT INFORMATION
  Report Type: Spontaneous
  Country: US (occurrence: US)
  Receive Date: 20130620
  Receipt Date: 20130712
  Transmission Date: 20140515
  Serious: No
  Sender: FDA-Public Use
  Company Number: US-B.I. PHARMACEUTICALS,INC./RIDGEFIELD-2013-BI-16882BP

PATIENT
  Age: 69 Year
  Sex: Male

DRUGS (3)
  1. COMBIVENT [Suspect]
     Indication: ASTHMA
     Dosage: STRENGTH: 20 MCG / 100 MCG; DAILY DOSE: 80 MCG/400 MCG
     Route: 055
     Dates: start: 20130607, end: 20130610
  2. COMBIVENT [Suspect]
     Indication: BRONCHOSPASM
  3. VENTOLIN [Concomitant]
     Indication: DYSPNOEA
     Dosage: FORMULATION: (INHALATION AEROSOL)
     Route: 055

REACTIONS (5)
  - Burning sensation [Recovered/Resolved]
  - Chest pain [Recovered/Resolved]
  - Oral discomfort [Recovered/Resolved]
  - Asthma [Recovered/Resolved]
  - Expired drug administered [Recovered/Resolved]
